FAERS Safety Report 9739272 (Version 2)
Quarter: 2014Q2

REPORT INFORMATION
  Report Type: Spontaneous
  Country: US (occurrence: US)
  Receive Date: 20131209
  Receipt Date: 20140408
  Transmission Date: 20141212
  Serious: No
  Sender: FDA-Public Use
  Company Number: US-PFIZER INC-2013346687

PATIENT
  Age: 65 Year
  Sex: Female

DRUGS (8)
  1. SUTENT [Suspect]
     Indication: RENAL CANCER
     Dosage: 50 MG, 1 DAILY 4 WKS ON, 2 WKS OFF
     Route: 048
     Dates: start: 20131021
  2. ZOLOFT [Concomitant]
     Dosage: UNK
  3. CREON [Concomitant]
     Dosage: UNK
  4. ALLOPURINOL [Concomitant]
     Dosage: UNK
  5. BETHANECHOL [Concomitant]
     Dosage: UNK
  6. SIMVASTATIN [Concomitant]
     Dosage: UNK
  7. HUMALOG [Concomitant]
     Dosage: UNK
  8. LEVEMIR [Concomitant]
     Dosage: UNK

REACTIONS (3)
  - Ageusia [Unknown]
  - Fatigue [Unknown]
  - Hair colour changes [Unknown]
